FAERS Safety Report 7432304-2 (Version None)
Quarter: 2011Q2

REPORT INFORMATION
  Report Type: 
  Country: None (occurrence: None)
  Receive Date: 20110422
  Receipt Date: 20110420
  Transmission Date: 20111010
  Serious: Yes (Hospitalization)
  Sender: FDA-Public Use
  Company Number: US-B.I. PHARMACEUTICALS,INC./RIDGEFIELD-2011-BP-08950BP

PATIENT
  Age: 61 Year
  Sex: Male

DRUGS (5)
  1. LISINOPRIL AND HYDROCHLOROTHIAZIDE [Concomitant]
     Dosage: 10/12.5MG
  2. SIMVASTATIN [Concomitant]
     Dosage: 40 MG
  3. PRADAXA [Suspect]
     Indication: ATRIAL FIBRILLATION
     Dosage: 300 MG
     Route: 048
     Dates: start: 20110225, end: 20110331
  4. LANOXIN [Concomitant]
     Dosage: 0.25 MG
  5. COUMADIN [Concomitant]
     Dosage: 10 MG

REACTIONS (2)
  - PARAESTHESIA [None]
  - CEREBROVASCULAR ACCIDENT [None]
